FAERS Safety Report 6211431-1 (Version None)
Quarter: 2009Q2

REPORT INFORMATION
  Report Type: 
  Country: None (occurrence: None)
  Receive Date: 20090602
  Receipt Date: 20090525
  Transmission Date: 20091009
  Serious: Yes (Life-Threatening, Other)
  Sender: FDA-Public Use
  Company Number: TR-ELI_LILLY_AND_COMPANY-TR200905005477

PATIENT
  Sex: Female

DRUGS (1)
  1. HUMATROPE [Suspect]
     Indication: GROWTH HORMONE DEFICIENCY
     Dosage: 0.68 MG, DAILY (1/D)
     Route: 058
     Dates: start: 20090416, end: 20090515

REACTIONS (3)
  - BENIGN INTRACRANIAL HYPERTENSION [None]
  - BRAIN HERNIATION [None]
  - INTRACRANIAL PRESSURE INCREASED [None]
